FAERS Safety Report 8847725 (Version 1)
Quarter: 2012Q4

REPORT INFORMATION
  Report Type: 
  Country: US (occurrence: US)
  Receive Date: 20121018
  Receipt Date: 20121018
  Transmission Date: 20130627
  Serious: No
  Sender: FDA-Public Use
  Company Number: US-ASTRAZENECA-2012SE78335

PATIENT
  Age: 60 Year
  Sex: Female

DRUGS (3)
  1. NEXIUM [Suspect]
     Route: 048
  2. PRILOSEC [Suspect]
     Route: 048
  3. OTHER [Suspect]
     Route: 065

REACTIONS (4)
  - Urinary tract infection [Unknown]
  - Bronchitis [Unknown]
  - Intentional drug misuse [Unknown]
  - Drug effect incomplete [Unknown]
